FAERS Safety Report 6529478-4 (Version None)
Quarter: 2010Q1

REPORT INFORMATION
  Report Type: 
  Country: None (occurrence: None)
  Receive Date: 20100107
  Receipt Date: 20091210
  Transmission Date: 20100710
  Serious: Yes (Hospitalization)
  Sender: FDA-Public Use
  Company Number: PHEH2009US14835

PATIENT
  Sex: Male

DRUGS (1)
  1. EXJADE [Suspect]
     Indication: ACUTE MYELOID LEUKAEMIA (IN REMISSION)
     Dosage: 1750 MG, QD
     Route: 048
     Dates: start: 20090917, end: 20090924

REACTIONS (2)
  - ACUTE MYELOID LEUKAEMIA RECURRENT [None]
  - BONE MARROW TRANSPLANT [None]
